FAERS Safety Report 8109356-X (Version None)
Quarter: 2012Q1

REPORT INFORMATION
  Report Type: 
  Country: None (occurrence: None)
  Receive Date: 20120202
  Receipt Date: 20120131
  Transmission Date: 20120608
  Serious: Yes (Other)
  Sender: FDA-Public Use
  Company Number: CHPA2012US002321

PATIENT
  Age: 67 Year
  Sex: Female

DRUGS (1)
  1. VOLTAREN [Suspect]
     Indication: ARTHRALGIA
     Dosage: 1/8 OF AN INCH, QID
     Dates: start: 20120101, end: 20120101

REACTIONS (5)
  - OFF LABEL USE [None]
  - GASTRITIS [None]
  - THERAPEUTIC RESPONSE UNEXPECTED [None]
  - PANCREATITIS [None]
  - ABDOMINAL PAIN UPPER [None]
